FAERS Safety Report 6219839-5 (Version None)
Quarter: 2009Q2

REPORT INFORMATION
  Report Type: 
  Country: None (occurrence: None)
  Receive Date: 20090609
  Receipt Date: 20090526
  Transmission Date: 20091009
  Serious: Yes (Hospitalization, Other)
  Sender: FDA-Public Use
  Company Number: US-ELI_LILLY_AND_COMPANY-US200905005174

PATIENT
  Sex: Female

DRUGS (2)
  1. FORTEO [Suspect]
     Indication: OSTEOPOROSIS
     Dosage: 20 D/F, DAILY (1/D)
     Dates: start: 20020101, end: 20040101
  2. PERCOCET [Concomitant]

REACTIONS (5)
  - ADVERSE DRUG REACTION [None]
  - BACK PAIN [None]
  - FALL [None]
  - FEAR OF FALLING [None]
  - SPINAL FRACTURE [None]
